FAERS Safety Report 16915073 (Version 2)
Quarter: 2020Q1

REPORT INFORMATION
  Report Type: Spontaneous
  Country: JP (occurrence: JP)
  Receive Date: 20191014
  Receipt Date: 20200304
  Transmission Date: 20200409
  Serious: Yes (Other)
  Sender: FDA-Public Use
  Company Number: JP-BAYER-2019-183282

PATIENT
  Age: 72 Year
  Sex: Male

DRUGS (2)
  1. XOFIGO [Suspect]
     Active Substance: RADIUM RA-223 DICHLORIDE
     Indication: HORMONE-REFRACTORY PROSTATE CANCER
     Dosage: DEPENDING ON PATIENT WEIGHT , Q1MON
     Route: 042
     Dates: start: 20190405, end: 20190906
  2. XOFIGO [Suspect]
     Active Substance: RADIUM RA-223 DICHLORIDE
     Indication: METASTASES TO BONE

REACTIONS (2)
  - Hormone-refractory prostate cancer [None]
  - Metastases to liver [Unknown]

NARRATIVE: CASE EVENT DATE: 201910
